FAERS Safety Report 10442634 (Version 2)
Quarter: 2014Q4

REPORT INFORMATION
  Report Type: Report from Study
  Country: ES (occurrence: SE)
  Receive Date: 20140909
  Receipt Date: 20141009
  Transmission Date: 20150528
  Serious: Yes (Other)
  Sender: FDA-Public Use
  Company Number: SE-FRI-1000070455

PATIENT
  Age: 60 Year
  Sex: Female

DRUGS (10)
  1. CITALOPRAM [Concomitant]
     Active Substance: CITALOPRAM HYDROBROMIDE
  2. ACLIDINIUM [Suspect]
     Active Substance: ACLIDINIUM BROMIDE
     Indication: CHRONIC OBSTRUCTIVE PULMONARY DISEASE
     Dosage: 644 MCG DAILY
     Route: 055
     Dates: start: 20140619, end: 20140719
  3. ALVEDON [Concomitant]
     Active Substance: ACETAMINOPHEN
     Indication: PAIN
     Dosage: 1-2 TABLETS THRICE DAILY
     Dates: start: 20130821
  4. OMEPRAZOL ACTAVIS [Concomitant]
     Active Substance: OMEPRAZOLE
     Indication: DYSPEPSIA
     Dates: start: 20140819
  5. CITALOPRAM [Concomitant]
     Active Substance: CITALOPRAM HYDROBROMIDE
     Indication: DEPRESSION
     Dosage: 1 TABLET IN THE MORNING
     Dates: start: 20131223
  6. KALCIPOS-D FORTE [Concomitant]
     Indication: OSTEOPOROSIS
     Dosage: 1 TABLET
     Dates: start: 20140819
  7. SOBRIL [Concomitant]
     Active Substance: OXAZEPAM
     Indication: SLEEP DISORDER
     Dosage: WHEN NEEDED
     Dates: start: 20130821
  8. CHAMPIX [Concomitant]
     Active Substance: VARENICLINE TARTRATE
     Dosage: 1 TABLET TWICE DAILY
     Dates: start: 20140707, end: 20141008
  9. OMEPRAZOL ACTAVIS [Concomitant]
     Active Substance: OMEPRAZOLE
     Dates: start: 2011
  10. VENTILASTIN NOVOLIZER [Concomitant]
     Dosage: 1 INHALATION WHEN NEEDED
     Dates: start: 20140619

REACTIONS (2)
  - Product taste abnormal [Recovered/Resolved]
  - Nausea [Recovered/Resolved]

NARRATIVE: CASE EVENT DATE: 20140719
